FAERS Safety Report 18380467 (Version 1)
Quarter: 2020Q4

REPORT INFORMATION
  Report Type: Spontaneous
  Country: US (occurrence: US)
  Receive Date: 20201014
  Receipt Date: 20201014
  Transmission Date: 20210114
  Serious: No
  Sender: FDA-Public Use
  Company Number: US-ACCORD-195799

PATIENT
  Age: 63 Year
  Sex: Female
  Weight: 94.2 kg

DRUGS (3)
  1. DAPTOMYCIN ACCORD [Suspect]
     Active Substance: DAPTOMYCIN
     Indication: BACTERAEMIA
     Dosage: STRENGTH:500 MG VIAL FOR INJECTION
     Route: 042
     Dates: start: 20200808
  2. PIPERACILLIN/TAZOBACTAM [Concomitant]
     Active Substance: PIPERACILLIN SODIUM\TAZOBACTAM SODIUM
     Indication: FEBRILE NEUTROPENIA
     Dosage: EVERY 6 HOURS.
     Route: 042
     Dates: start: 20200807
  3. DAPTOMYCIN ACCORD [Suspect]
     Active Substance: DAPTOMYCIN
     Indication: BACTERAEMIA
     Dosage: STRENGTH:500 MG VIAL FOR INJECTION
     Route: 042
     Dates: start: 20200809

REACTIONS (1)
  - Chills [Recovered/Resolved]

NARRATIVE: CASE EVENT DATE: 20200808
